FAERS Safety Report 5021549-7 (Version None)
Quarter: 2006Q2

REPORT INFORMATION
  Report Type: 
  Country: None (occurrence: None)
  Receive Date: 20060601
  Receipt Date: 20060309
  Transmission Date: 20061013
  Serious: No
  Sender: FDA-Public Use
  Company Number: 2006PV009984

PATIENT
  Age: 60 Year
  Sex: Male
  Weight: 131.5431 kg

DRUGS (9)
  1. BYETTA [Suspect]
     Indication: DIABETES MELLITUS NON-INSULIN-DEPENDENT
     Dosage: SEE IMAGE
     Route: 058
     Dates: start: 20050101, end: 20050101
  2. BYETTA [Suspect]
     Indication: DIABETES MELLITUS NON-INSULIN-DEPENDENT
     Dosage: SEE IMAGE
     Route: 058
     Dates: start: 20050101
  3. BYETTA [Suspect]
     Indication: DIABETES MELLITUS NON-INSULIN-DEPENDENT
     Dosage: SEE IMAGE
     Route: 058
     Dates: start: 20050101
  4. METFORMIN HCL [Concomitant]
  5. GLIMEPIRIDE [Concomitant]
  6. SOTALOL HCL [Concomitant]
  7. IMDUR [Concomitant]
  8. CRESTOR [Concomitant]
  9. NITROGLYCERIN [Concomitant]

REACTIONS (3)
  - ARRHYTHMIA [None]
  - CONDITION AGGRAVATED [None]
  - FEELING ABNORMAL [None]
